FAERS Safety Report 8251119-9 (Version None)
Quarter: 2012Q2

REPORT INFORMATION
  Report Type: 
  Country: None (occurrence: None)
  Receive Date: 20120402
  Receipt Date: 20120326
  Transmission Date: 20120825
  Serious: Yes (Hospitalization)
  Sender: FDA-Public Use
  Company Number: IE-PFIZER INC-2012078947

PATIENT
  Age: 62 Year
  Sex: Female

DRUGS (1)
  1. LINEZOLID [Suspect]
     Indication: INFECTION

REACTIONS (1)
  - RENAL FAILURE [None]
